FAERS Safety Report 11194486 (Version 2)
Quarter: 2015Q3

REPORT INFORMATION
  Report Type: Spontaneous
  Country: JP (occurrence: JP)
  Receive Date: 20150616
  Receipt Date: 20150702
  Transmission Date: 20151125
  Serious: Yes (Hospitalization)
  Sender: FDA-Public Use
  Company Number: JP-TAKEDA-2015TJP010240

PATIENT
  Age: 83 Year
  Sex: Male
  Weight: 50.8 kg

DRUGS (4)
  1. AVOLVE [Concomitant]
     Active Substance: DUTASTERIDE
     Indication: DYSURIA
     Dosage: 0.5 MG, QD
     Route: 048
     Dates: start: 20141216, end: 20150531
  2. NESINA [Suspect]
     Active Substance: ALOGLIPTIN BENZOATE
     Dosage: 25 MG, UNK
     Route: 048
     Dates: start: 20150610, end: 20150610
  3. TAMSULOSIN HYDROCHLORIDE. [Concomitant]
     Active Substance: TAMSULOSIN HYDROCHLORIDE
     Indication: DYSURIA
     Dosage: 0.2 MG, QD
     Route: 048
     Dates: start: 20141216, end: 20150531
  4. NESINA [Suspect]
     Active Substance: ALOGLIPTIN BENZOATE
     Indication: BLOOD GLUCOSE ABNORMAL
     Dosage: 25 MG, UNK
     Route: 048
     Dates: start: 20130222, end: 20150531

REACTIONS (2)
  - Altered state of consciousness [Recovering/Resolving]
  - Pyrexia [Recovering/Resolving]

NARRATIVE: CASE EVENT DATE: 20150601
